FAERS Safety Report 23272298 (Version 1)
Quarter: 2023Q4

REPORT INFORMATION
  Report Type: Spontaneous
  Country: US (occurrence: US)
  Receive Date: 20231207
  Receipt Date: 20231207
  Transmission Date: 20240110
  Serious: No
  Sender: FDA-Public Use
  Company Number: US-APIL-2316084US

PATIENT

DRUGS (1)
  1. URSO [Suspect]
     Active Substance: URSODIOL
     Indication: Primary biliary cholangitis
     Dosage: FORM STRENGTH: 250 MG
     Route: 048

REACTIONS (1)
  - Rash [Unknown]
